FAERS Safety Report 8935503 (Version 1)
Quarter: 2012Q4

REPORT INFORMATION
  Report Type: Spontaneous
  Country: US (occurrence: None)
  Receive Date: 20121128
  Receipt Date: 20121128
  Transmission Date: 20130627
  Serious: Yes (Life-Threatening, Hospitalization)
  Sender: FDA-Public Use
  Company Number: None

PATIENT
  Age: 64 Year
  Sex: Female
  Weight: 108.9 kg

DRUGS (1)
  1. MOXIFLOXACIN [Suspect]
     Indication: COMMUNITY ACQUIRED PNEUMONIA
     Dosage: 400 mg once IV
     Route: 042
     Dates: start: 20121012, end: 20121012

REACTIONS (8)
  - Skin discolouration [None]
  - Respiratory failure [None]
  - Electrocardiogram ST segment elevation [None]
  - Dyspnoea [None]
  - Tachycardia [None]
  - Fluid overload [None]
  - Anaphylactic reaction [None]
  - Chronic obstructive pulmonary disease [None]
